FAERS Safety Report 19832996 (Version 5)
Quarter: 2021Q4

REPORT INFORMATION
  Report Type: Report from Study
  Country: US (occurrence: US)
  Receive Date: 20210915
  Receipt Date: 20211124
  Transmission Date: 20220303
  Serious: Yes (Hospitalization)
  Sender: FDA-Public Use
  Company Number: US-TAIHO ONCOLOGY INC-EU-2021-02909

PATIENT
  Age: 73 Year
  Sex: Female
  Weight: 42.1 kg

DRUGS (6)
  1. TIPIRACIL HYDROCHLORIDE\TRIFLURIDINE [Suspect]
     Active Substance: TIPIRACIL HYDROCHLORIDE\TRIFLURIDINE
     Indication: Colon cancer
     Dosage: CYCLE UNKNOWN (COMPLETED 3 CYCLES)
     Route: 048
     Dates: start: 20210714
  2. TIPIRACIL HYDROCHLORIDE\TRIFLURIDINE [Suspect]
     Active Substance: TIPIRACIL HYDROCHLORIDE\TRIFLURIDINE
     Dosage: FREQUENCY UNKNOWN
     Route: 048
  3. IRINOTECAN [Suspect]
     Active Substance: IRINOTECAN
     Indication: Colon cancer
     Dosage: CYCLE UNKNOWN (COMPLETED 3 CYCLES)
     Route: 042
     Dates: start: 20210714, end: 20210825
  4. NEUPOGEN [Concomitant]
     Active Substance: FILGRASTIM
     Indication: Neutropenia
     Dosage: STARTING ON DAY 9 OF TREATMENT CYCLE FOR 5 DAYS
     Dates: start: 20210819
  5. AVASTIN [Concomitant]
     Active Substance: BEVACIZUMAB
     Dates: start: 20210714
  6. AVASTIN [Concomitant]
     Active Substance: BEVACIZUMAB
     Dates: start: 20210811

REACTIONS (3)
  - Abdominal pain [Recovered/Resolved]
  - Acute kidney injury [Recovered/Resolved]
  - Clostridium difficile colitis [Unknown]

NARRATIVE: CASE EVENT DATE: 20210908
